FAERS Safety Report 19375670 (Version 2)
Quarter: 2021Q4

REPORT INFORMATION
  Report Type: Report from Study
  Country: KR (occurrence: KR)
  Receive Date: 20210605
  Receipt Date: 20211202
  Transmission Date: 20220303
  Serious: Yes (Hospitalization, Other)
  Sender: FDA-Public Use
  Company Number: KR-KYOWAKIRIN-2021AKK009044

PATIENT
  Age: 81 Year
  Sex: Male

DRUGS (59)
  1. FILGRASTIM [Suspect]
     Active Substance: FILGRASTIM
     Indication: Product used for unknown indication
     Dosage: UNK UNK, QD
     Route: 065
     Dates: start: 20100218, end: 20100218
  2. FILGRASTIM [Suspect]
     Active Substance: FILGRASTIM
     Dosage: UNK UNK, QD
     Route: 065
     Dates: start: 20100221, end: 20100224
  3. FILGRASTIM [Suspect]
     Active Substance: FILGRASTIM
     Dosage: UNK UNK, QD
     Route: 065
     Dates: start: 20100303, end: 20100311
  4. FILGRASTIM [Suspect]
     Active Substance: FILGRASTIM
     Dosage: UNK UNK, QD
     Route: 065
     Dates: start: 20100322, end: 20100402
  5. FILGRASTIM [Suspect]
     Active Substance: FILGRASTIM
     Dosage: UNK UNK, QD
     Route: 065
     Dates: start: 20100405, end: 20100405
  6. FILGRASTIM [Suspect]
     Active Substance: FILGRASTIM
     Dosage: UNK UNK, QD
     Route: 065
     Dates: start: 20100407, end: 20100407
  7. FILGRASTIM [Suspect]
     Active Substance: FILGRASTIM
     Dosage: UNK UNK, QD
     Route: 065
     Dates: start: 20100409, end: 20100409
  8. FILGRASTIM [Suspect]
     Active Substance: FILGRASTIM
     Dosage: UNK UNK, QD
     Route: 065
     Dates: start: 20100412, end: 20100414
  9. FILGRASTIM [Suspect]
     Active Substance: FILGRASTIM
     Dosage: UNK UNK, QD
     Route: 065
     Dates: start: 20100423, end: 20100423
  10. FILGRASTIM [Suspect]
     Active Substance: FILGRASTIM
     Dosage: UNK UNK, QD
     Route: 065
     Dates: start: 20100429, end: 20100430
  11. FILGRASTIM [Suspect]
     Active Substance: FILGRASTIM
     Dosage: UNK UNK, QD
     Route: 065
     Dates: start: 20100503, end: 20100514
  12. FILGRASTIM [Suspect]
     Active Substance: FILGRASTIM
     Dosage: UNK UNK, QD
     Route: 065
     Dates: start: 20100517, end: 20100520
  13. FILGRASTIM [Suspect]
     Active Substance: FILGRASTIM
     Dosage: UNK UNK, QD
     Route: 065
     Dates: start: 20100525, end: 20100529
  14. FILGRASTIM [Suspect]
     Active Substance: FILGRASTIM
     Dosage: UNK UNK, QD
     Route: 065
     Dates: start: 20100531, end: 20100601
  15. FILGRASTIM [Suspect]
     Active Substance: FILGRASTIM
     Dosage: UNK UNK, QD
     Route: 065
     Dates: start: 20100603, end: 20100604
  16. FILGRASTIM [Suspect]
     Active Substance: FILGRASTIM
     Dosage: UNK UNK, QD
     Route: 065
     Dates: start: 20100607, end: 20100607
  17. FILGRASTIM [Suspect]
     Active Substance: FILGRASTIM
     Dosage: UNK UNK, QD
     Route: 065
     Dates: start: 20100617, end: 20100702
  18. FILGRASTIM [Suspect]
     Active Substance: FILGRASTIM
     Dosage: UNK UNK, QD
     Route: 065
     Dates: start: 20100705, end: 20100710
  19. FILGRASTIM [Suspect]
     Active Substance: FILGRASTIM
     Dosage: UNK UNK, QD
     Route: 065
     Dates: start: 20100712, end: 20100714
  20. FILGRASTIM [Suspect]
     Active Substance: FILGRASTIM
     Dosage: UNK UNK, QD
     Route: 065
     Dates: start: 20100719, end: 20100719
  21. FILGRASTIM [Suspect]
     Active Substance: FILGRASTIM
     Dosage: UNK UNK, QD
     Route: 065
     Dates: start: 20100728, end: 20100730
  22. FILGRASTIM [Suspect]
     Active Substance: FILGRASTIM
     Dosage: UNK UNK, QD
     Route: 065
     Dates: start: 20100802, end: 20100802
  23. FILGRASTIM [Suspect]
     Active Substance: FILGRASTIM
     Dosage: UNK UNK, QD
     Route: 065
     Dates: start: 20100804, end: 20100805
  24. FILGRASTIM [Suspect]
     Active Substance: FILGRASTIM
     Dosage: UNK UNK, QD
     Route: 065
     Dates: start: 20100819, end: 20100827
  25. FILGRASTIM [Suspect]
     Active Substance: FILGRASTIM
     Dosage: UNK UNK, QD
     Route: 065
     Dates: start: 20100830, end: 20100830
  26. FILGRASTIM [Suspect]
     Active Substance: FILGRASTIM
     Dosage: UNK UNK, QD
     Route: 065
     Dates: start: 20100906, end: 20100906
  27. FILGRASTIM [Suspect]
     Active Substance: FILGRASTIM
     Dosage: UNK UNK, QD
     Route: 065
     Dates: start: 20100908, end: 20100915
  28. DECITABINE [Concomitant]
     Active Substance: DECITABINE
     Indication: Product used for unknown indication
     Dosage: 20 UNK, QD
     Dates: start: 20100209, end: 20100213
  29. DECITABINE [Concomitant]
     Active Substance: DECITABINE
     Dosage: 20 UNK, QD
     Dates: start: 20100316, end: 20100320
  30. DECITABINE [Concomitant]
     Active Substance: DECITABINE
     Dosage: 20 UNK, QD
     Dates: start: 20100419, end: 20100423
  31. DECITABINE [Concomitant]
     Active Substance: DECITABINE
     Dosage: 20 UNK, QD
     Dates: start: 20100608, end: 20100612
  32. DECITABINE [Concomitant]
     Active Substance: DECITABINE
     Dosage: 20 UNK, QD
     Dates: start: 20100809, end: 20100813
  33. GINKGO [Concomitant]
     Active Substance: GINKGO
     Indication: Product used for unknown indication
     Dosage: 40 MG, QD
     Dates: start: 20100911
  34. ASPIRIN [Concomitant]
     Active Substance: ASPIRIN
     Indication: Product used for unknown indication
     Dosage: 1 DOSAGE FORM, QD
     Dates: start: 20100909
  35. ATORVASTATIN [Concomitant]
     Active Substance: ATORVASTATIN
     Indication: Product used for unknown indication
     Dosage: 10 MILLIGRAM, QD
     Dates: start: 20100911
  36. CEFEPIME [Concomitant]
     Active Substance: CEFEPIME HYDROCHLORIDE
     Indication: Product used for unknown indication
     Dosage: 2 UNK, QD
     Dates: start: 20100218, end: 20100225
  37. CEFEPIME [Concomitant]
     Active Substance: CEFEPIME HYDROCHLORIDE
     Dosage: 2 UNK, QD
     Dates: start: 20100304, end: 20100309
  38. CHLORMADINONE [Concomitant]
     Active Substance: CHLORMADINONE
     Indication: Product used for unknown indication
     Dosage: 50 MILLIGRAM, QD
     Dates: start: 20100302
  39. DESONIDE [Concomitant]
     Active Substance: DESONIDE
     Indication: Product used for unknown indication
     Dosage: UNK, QD
     Dates: start: 20100211, end: 20100212
  40. DIPHENYLPYRALINE [Concomitant]
     Active Substance: DIPHENYLPYRALINE
     Indication: Product used for unknown indication
     Dosage: 3 MG, QD
     Dates: start: 20100219, end: 20100225
  41. FEXOFENADINE [Concomitant]
     Active Substance: FEXOFENADINE HYDROCHLORIDE
     Indication: Product used for unknown indication
     Dosage: 1 DF, QD
     Dates: start: 20100212, end: 20100216
  42. FLUCONAZOLE [Concomitant]
     Active Substance: FLUCONAZOLE
     Indication: Product used for unknown indication
     Dosage: 50 MG, QD
     Dates: start: 20100601, end: 20100605
  43. FOLIC ACID [Concomitant]
     Active Substance: FOLIC ACID
     Indication: Product used for unknown indication
     Dosage: 1 MG, QD
  44. FUROSEMIDE [Concomitant]
     Active Substance: FUROSEMIDE
     Indication: Product used for unknown indication
     Dosage: 10 MG, QD
     Dates: start: 20100915, end: 20100915
  45. HYDROCORTISONE [Concomitant]
     Active Substance: HYDROCORTISONE
     Indication: Product used for unknown indication
     Dosage: 50 MG, QD
     Dates: start: 20100219, end: 20100225
  46. HYDROXYZINE [Concomitant]
     Active Substance: HYDROXYZINE HYDROCHLORIDE
     Indication: Product used for unknown indication
     Dosage: 10 MG, QD
     Dates: start: 20100211, end: 20100211
  47. MAGNESIUM HYDROXIDE [Concomitant]
     Active Substance: MAGNESIUM HYDROXIDE
     Indication: Product used for unknown indication
     Dosage: 1000 MG, QD
     Dates: start: 20100701, end: 20100711
  48. MEGESTROL [Concomitant]
     Active Substance: MEGESTROL
     Indication: Product used for unknown indication
     Dosage: 20 UNK, QD
     Dates: start: 20100303, end: 20100629
  49. MEQUITAZINE [Concomitant]
     Active Substance: MEQUITAZINE
     Indication: Product used for unknown indication
     Dosage: 5 MG, QD
     Dates: start: 20100211, end: 20100211
  50. METOCLOPRAMIDE [Concomitant]
     Active Substance: METOCLOPRAMIDE
     Indication: Product used for unknown indication
     Dosage: 10 MG, QD
     Dates: start: 20100219, end: 20100225
  51. MOSAPRIDE [Concomitant]
     Active Substance: MOSAPRIDE
     Indication: Product used for unknown indication
     Dosage: 5 MG, QD
     Dates: start: 20100701, end: 20100711
  52. MOSAPRIDE [Concomitant]
     Active Substance: MOSAPRIDE
     Dosage: 5 MG, QD
     Dates: start: 20100225, end: 20100225
  53. PYRIDOXINE [Concomitant]
     Active Substance: PYRIDOXINE
     Indication: Product used for unknown indication
     Dosage: 50 MG, QD
     Dates: start: 20100303
  54. RANITIDINE [Concomitant]
     Active Substance: RANITIDINE
     Indication: Product used for unknown indication
     Dosage: 150 MG, QD
     Dates: start: 20100719, end: 20100723
  55. REBAMIPIDE [Concomitant]
     Active Substance: REBAMIPIDE
     Indication: Product used for unknown indication
     Dosage: 1 DF, QD
     Dates: start: 20100911
  56. REBAMIPIDE [Concomitant]
     Active Substance: REBAMIPIDE
     Dosage: 100 MG, QD
     Dates: start: 20100910, end: 20100910
  57. TAMSULOSIN [Concomitant]
     Active Substance: TAMSULOSIN
     Indication: Product used for unknown indication
     Dosage: 0.2 MG, QD
     Dates: end: 20100301
  58. TAMSULOSIN [Concomitant]
     Active Substance: TAMSULOSIN
     Dosage: 0.4 MG, QD
     Dates: start: 20100302
  59. TOLTERODINE [Concomitant]
     Active Substance: TOLTERODINE
     Indication: Product used for unknown indication
     Dosage: 2 MG, QD
     Dates: start: 20100302

REACTIONS (2)
  - Febrile neutropenia [Recovered/Resolved]
  - Muscular weakness [Recovered/Resolved]

NARRATIVE: CASE EVENT DATE: 20100906
